FAERS Safety Report 13599786 (Version 3)
Quarter: 2018Q1

REPORT INFORMATION
  Report Type: Report from Study
  Country: None (occurrence: BR)
  Receive Date: 20170601
  Receipt Date: 20180104
  Transmission Date: 20180508
  Serious: Yes (Hospitalization, Other)
  Sender: FDA-Public Use
  Company Number: BR-ABBVIE-17K-020-1993174-00

PATIENT
  Age: 60 Year
  Sex: Male
  Weight: 87 kg

DRUGS (1)
  1. HUMIRA [Suspect]
     Active Substance: ADALIMUMAB
     Indication: PSORIATIC ARTHROPATHY
     Route: 058
     Dates: start: 20170418, end: 20170526

REACTIONS (12)
  - Lip swelling [Not Recovered/Not Resolved]
  - Urinary tract infection [Unknown]
  - Blood cholesterol increased [Recovering/Resolving]
  - Fluid retention [Not Recovered/Not Resolved]
  - Immunodeficiency [Not Recovered/Not Resolved]
  - Renal disorder [Not Recovered/Not Resolved]
  - Blood pressure increased [Recovering/Resolving]
  - Swelling [Not Recovered/Not Resolved]
  - Nephritis [Unknown]
  - Swelling face [Not Recovered/Not Resolved]
  - Protein total decreased [Not Recovered/Not Resolved]
  - Dysuria [Unknown]

NARRATIVE: CASE EVENT DATE: 2017
